FAERS Safety Report 25860984 (Version 1)
Quarter: 2025Q3

REPORT INFORMATION
  Report Type: Spontaneous
  Country: US (occurrence: US)
  Receive Date: 20250929
  Receipt Date: 20250929
  Transmission Date: 20251021
  Serious: No
  Sender: SANOFI AVENTIS
  Company Number: US-SA-2025SA289344

PATIENT
  Age: 74 Year
  Sex: Female
  Weight: 70.45 kg

DRUGS (2)
  1. DUPIXENT [Suspect]
     Active Substance: DUPILUMAB
     Indication: Dermatitis atopic
     Dosage: 300 MG, QOW
     Route: 058
     Dates: end: 2025
  2. NEMLUVIO [Suspect]
     Active Substance: NEMOLIZUMAB-ILTO
     Dates: start: 20250917, end: 20250917

REACTIONS (6)
  - Urticaria [Unknown]
  - Eyelid exfoliation [Unknown]
  - Erythema [Unknown]
  - Eyelid pain [Unknown]
  - Dermatitis atopic [Unknown]
  - Erythema of eyelid [Unknown]

NARRATIVE: CASE EVENT DATE: 20250901
